FAERS Safety Report 4835177-7 (Version None)
Quarter: 2005Q4

REPORT INFORMATION
  Report Type: 
  Country: None (occurrence: None)
  Receive Date: 20051114
  Receipt Date: 20050823
  Transmission Date: 20060501
  Serious: Yes (Life-Threatening, Other)
  Sender: FDA-Public Use
  Company Number: 2005BH001279

PATIENT
  Sex: Male

DRUGS (2)
  1. VANCOMYCIN [Suspect]
     Dosage: IV
     Route: 042
     Dates: start: 20050823, end: 20050823
  2. LACTATED RINGER'S [Suspect]
     Dosage: IV
     Route: 042

REACTIONS (7)
  - AGITATION [None]
  - BRONCHOSPASM [None]
  - DYSPNOEA [None]
  - HYPOTENSION [None]
  - PRURITUS [None]
  - RASH [None]
  - VASODILATATION [None]
